FAERS Safety Report 12189821 (Version 1)
Quarter: 2016Q1

REPORT INFORMATION
  Report Type: Spontaneous
  Country: US (occurrence: US)
  Receive Date: 20160318
  Receipt Date: 20160318
  Transmission Date: 20160526
  Serious: Yes (Hospitalization, Other)
  Sender: FDA-Public Use
  Company Number: US-BEH-2016060116

PATIENT
  Sex: Male

DRUGS (1)
  1. INTRAVENEOUS IMMUNOGLOBULIN [Suspect]
     Active Substance: HUMAN IMMUNOGLOBULIN G
     Indication: INTERSTITIAL LUNG DISEASE
     Dosage: 5 INFUSIONS OF 35 G EACH
     Route: 042

REACTIONS (3)
  - Dyspnoea [Recovered/Resolved]
  - Haemolysis [Recovered/Resolved]
  - Product use issue [None]
